FAERS Safety Report 10795269 (Version 1)
Quarter: 2015Q1

REPORT INFORMATION
  Report Type: Spontaneous
  Country: US (occurrence: US)
  Receive Date: 20150214
  Receipt Date: 20150214
  Transmission Date: 20150721
  Serious: No
  Sender: FDA-Public Use
  Company Number: US-GLAXOSMITHKLINE-A1080394A

PATIENT

DRUGS (8)
  1. DAILY VITAMIN [Concomitant]
     Active Substance: VITAMINS
  2. SYNTHROID [Concomitant]
     Active Substance: LEVOTHYROXINE SODIUM
  3. CELLCEPT [Concomitant]
     Active Substance: MYCOPHENOLATE MOFETIL\MYCOPHENOLATE MOFETIL HYDROCHLORIDE
  4. KRILL OIL [Concomitant]
     Active Substance: DIETARY SUPPLEMENT
  5. ADVAIR DISKUS [Suspect]
     Active Substance: FLUTICASONE PROPIONATE\SALMETEROL XINAFOATE
     Indication: INTERSTITIAL LUNG DISEASE
     Dosage: 115/21
     Route: 055
     Dates: start: 201107
  6. PREDNISONE. [Concomitant]
     Active Substance: PREDNISONE
  7. ALBUTEROL. [Concomitant]
     Active Substance: ALBUTEROL
  8. ADVAIR DISKUS [Suspect]
     Active Substance: FLUTICASONE PROPIONATE\SALMETEROL XINAFOATE
     Indication: INTERSTITIAL LUNG DISEASE
     Route: 055

REACTIONS (8)
  - Aphthous stomatitis [Unknown]
  - Glossodynia [Unknown]
  - Anosmia [Unknown]
  - Oral candidiasis [Unknown]
  - Drug ineffective [Unknown]
  - Ageusia [Unknown]
  - Drug administration error [Unknown]
  - Expired product administered [Unknown]
